FAERS Safety Report 6291279-2 (Version None)
Quarter: 2009Q3

REPORT INFORMATION
  Report Type: 
  Country: None (occurrence: None)
  Receive Date: 20090728
  Receipt Date: 20090728
  Transmission Date: 20100115
  Serious: Yes (Hospitalization)
  Sender: FDA-Public Use
  Company Number: None

PATIENT
  Age: 37 Year
  Sex: Female
  Weight: 68.4932 kg

DRUGS (2)
  1. ONEADAY WEIGHT SMART ADVANCED [Suspect]
     Indication: VITAMIN SUPPLEMENTATION
     Dosage: 1 TABLET ONCE A DAY PO
     Route: 048
     Dates: start: 20090710, end: 20090727
  2. TO MANY TO LIST [Concomitant]

REACTIONS (4)
  - ANXIETY [None]
  - CARDIAC FLUTTER [None]
  - DYSPNOEA [None]
  - HYPERTENSION [None]
